FAERS Safety Report 14612590 (Version 3)
Quarter: 2018Q1

REPORT INFORMATION
  Report Type: Report from Study
  Country: US (occurrence: US)
  Receive Date: 20180308
  Receipt Date: 20180323
  Transmission Date: 20180509
  Serious: Yes (Hospitalization, Other)
  Sender: FDA-Public Use
  Company Number: US-SA-2018SA062083

PATIENT
  Age: 62 Year
  Sex: Male

DRUGS (2)
  1. LEMTRADA [Suspect]
     Active Substance: ALEMTUZUMAB
     Indication: MULTIPLE SCLEROSIS
     Route: 041
     Dates: start: 20180220, end: 20180222
  2. PROVIGIL [Concomitant]
     Active Substance: MODAFINIL
     Indication: POOR QUALITY SLEEP
     Route: 065

REACTIONS (7)
  - Liver disorder [Unknown]
  - Insomnia [Recovered/Resolved]
  - Hypertension [Unknown]
  - Loss of consciousness [Recovered/Resolved]
  - Liver function test increased [Unknown]
  - Electrocardiogram ST segment elevation [Unknown]
  - Depressed level of consciousness [Recovered/Resolved]

NARRATIVE: CASE EVENT DATE: 201802
